FAERS Safety Report 6957951-3 (Version None)
Quarter: 2010Q3

REPORT INFORMATION
  Report Type: 
  Country: None (occurrence: None)
  Receive Date: 20100830
  Receipt Date: 20100830
  Transmission Date: 20110219
  Serious: Yes (Other)
  Sender: FDA-Public Use
  Company Number: None

PATIENT
  Age: 42 Year
  Sex: Female
  Weight: 111.1313 kg

DRUGS (1)
  1. ESTRADIOL [Suspect]
     Indication: HORMONE REPLACEMENT THERAPY
     Dosage: 0.1MG/DAY CHANGE 1X/WK TRANSDERMAL
     Route: 062
     Dates: start: 20100802, end: 20100830

REACTIONS (3)
  - ECONOMIC PROBLEM [None]
  - PRODUCT ADHESION ISSUE [None]
  - PRODUCT SUBSTITUTION ISSUE [None]
